FAERS Safety Report 6940611-2 (Version None)
Quarter: 2010Q3

REPORT INFORMATION
  Report Type: 
  Country: None (occurrence: None)
  Receive Date: 20100825
  Receipt Date: 20100820
  Transmission Date: 20110219
  Serious: Yes (Death)
  Sender: FDA-Public Use
  Company Number: PHHY2010MX55132

PATIENT
  Sex: Male

DRUGS (1)
  1. ZOLEDRONIC [Suspect]
     Indication: OSTEOPOROSIS
     Dosage: 5 MG/100 ML (1 INJECTION) PER YEAR

REACTIONS (1)
  - DEATH [None]
